FAERS Safety Report 11940341 (Version 1)
Quarter: 2016Q1

REPORT INFORMATION
  Report Type: Spontaneous
  Country: US (occurrence: US)
  Receive Date: 20160122
  Receipt Date: 20160122
  Transmission Date: 20160526
  Serious: Yes (Other)
  Sender: FDA-Public Use
  Company Number: US-PFIZER INC-2016035072

PATIENT
  Age: 3 Decade
  Sex: Male

DRUGS (2)
  1. XANAX [Suspect]
     Active Substance: ALPRAZOLAM
     Indication: ANXIETY
     Dosage: UNK
  2. XANAX [Suspect]
     Active Substance: ALPRAZOLAM
     Indication: PANIC ATTACK

REACTIONS (11)
  - Rotator cuff syndrome [Recovering/Resolving]
  - Ligamentitis [Recovering/Resolving]
  - Urinary incontinence [Unknown]
  - Stress [Unknown]
  - Drug withdrawal syndrome [Unknown]
  - Headache [Recovering/Resolving]
  - Tremor [Unknown]
  - Fall [Unknown]
  - Memory impairment [Unknown]
  - Seizure [Recovered/Resolved]
  - Loss of consciousness [Unknown]
